FAERS Safety Report 4283616-5 (Version None)
Quarter: 2004Q1

REPORT INFORMATION
  Report Type: 
  Country: None (occurrence: None)
  Receive Date: 20040115
  Receipt Date: 20030306
  Transmission Date: 20041129
  Serious: Yes (Hospitalization)
  Sender: FDA-Public Use
  Company Number: NSADSS2003010639

PATIENT
  Age: 60 Year
  Sex: Female
  Weight: 67.1324 kg

DRUGS (3)
  1. DOXIL [Suspect]
     Indication: OVARIAN CANCER
     Dosage: 70 MG, INTRAVENOUS DRIP
     Route: 041
     Dates: start: 20030304, end: 20030304
  2. DEXAMETHASONE [Concomitant]
  3. KYTRIL [Concomitant]

REACTIONS (8)
  - BACK PAIN [None]
  - BRADYCARDIA [None]
  - CONDITION AGGRAVATED [None]
  - DIZZINESS [None]
  - HYPERSENSITIVITY [None]
  - HYPOTENSION [None]
  - LOSS OF CONSCIOUSNESS [None]
  - NAUSEA [None]
